FAERS Safety Report 11503773 (Version 1)
Quarter: 2015Q3

REPORT INFORMATION
  Report Type: Report from Study
  Country: DE (occurrence: DE)
  Receive Date: 20150914
  Receipt Date: 20150914
  Transmission Date: 20151125
  Serious: Yes (Hospitalization, Other)
  Sender: FDA-Public Use
  Company Number: DE-SA-2015SA137818

PATIENT
  Age: 66 Year
  Sex: Female

DRUGS (8)
  1. LEUCOVORIN. [Concomitant]
     Active Substance: LEUCOVORIN
     Route: 065
  2. ZALTRAP [Suspect]
     Active Substance: ZIV-AFLIBERCEPT
     Indication: COLORECTAL CANCER METASTATIC
     Route: 042
     Dates: start: 20150504, end: 20150504
  3. OXALIPLATIN. [Concomitant]
     Active Substance: OXALIPLATIN
     Indication: NEOPLASM
     Route: 065
     Dates: start: 20150504, end: 20150504
  4. 5-FU [Concomitant]
     Active Substance: FLUOROURACIL
     Indication: NEOPLASM
     Route: 042
     Dates: start: 20150504, end: 20150504
  5. 5-FU [Concomitant]
     Active Substance: FLUOROURACIL
     Indication: NEOPLASM
     Route: 042
     Dates: start: 20150629, end: 20150629
  6. IRINOTECAN [Concomitant]
     Active Substance: IRINOTECAN
     Route: 065
  7. ZALTRAP [Suspect]
     Active Substance: ZIV-AFLIBERCEPT
     Indication: COLORECTAL CANCER METASTATIC
     Route: 042
     Dates: start: 20150629, end: 20150629
  8. OXALIPLATIN. [Concomitant]
     Active Substance: OXALIPLATIN
     Indication: NEOPLASM
     Route: 065
     Dates: start: 20150629, end: 20150629

REACTIONS (1)
  - Ileus [Recovered/Resolved]

NARRATIVE: CASE EVENT DATE: 20150703
